FAERS Safety Report 23690251 (Version 3)
Quarter: 2024Q2

REPORT INFORMATION
  Report Type: Spontaneous
  Country: CA (occurrence: CA)
  Receive Date: 20240401
  Receipt Date: 20240425
  Transmission Date: 20240716
  Serious: Yes (Other)
  Sender: FDA-Public Use
  Company Number: CA-UNITED THERAPEUTICS-UNT-2024-001043

PATIENT
  Age: 58 Year
  Sex: Female

DRUGS (3)
  1. REMODULIN [Suspect]
     Active Substance: TREPROSTINIL
     Indication: Pulmonary arterial hypertension
     Dosage: UNK, (APPROXIMATELY 0.041 ?G/KG), CONTINUING
     Route: 058
  2. REMODULIN [Suspect]
     Active Substance: TREPROSTINIL
     Dosage: 0.0407 ?G/KG, CONTINUING
     Route: 058
  3. REMODULIN [Suspect]
     Active Substance: TREPROSTINIL
     Dosage: UNK, CONTINUING
     Route: 058
     Dates: start: 20230523

REACTIONS (11)
  - Parathyroid tumour benign [Not Recovered/Not Resolved]
  - Infusion site haemorrhage [Recovered/Resolved]
  - Staphylococcal infection [Not Recovered/Not Resolved]
  - Streptococcal infection [Not Recovered/Not Resolved]
  - Unintentional medical device removal [Unknown]
  - Device breakage [Not Recovered/Not Resolved]
  - Infusion site rash [Not Recovered/Not Resolved]
  - Eczema [Not Recovered/Not Resolved]
  - Breathing-related sleep disorder [Not Recovered/Not Resolved]
  - Body mass index increased [Not Recovered/Not Resolved]
  - Right ventricular dysfunction [Unknown]

NARRATIVE: CASE EVENT DATE: 20231101
